FAERS Safety Report 12238246 (Version 1)
Quarter: 2016Q2

REPORT INFORMATION
  Report Type: Spontaneous
  Country: CH (occurrence: CH)
  Receive Date: 20160405
  Receipt Date: 20160405
  Transmission Date: 20160815
  Serious: Yes (Hospitalization)
  Sender: FDA-Public Use
  Company Number: CH-PFIZER INC-2016183307

PATIENT
  Age: 39 Year
  Sex: Female

DRUGS (16)
  1. ALDACTONE [Suspect]
     Active Substance: SPIRONOLACTONE
     Dosage: 50 MG, 1X/DAY
     Route: 048
     Dates: end: 20150628
  2. VITAMIN D3 WILD [Concomitant]
     Dosage: 500 IU, DAILY
  3. ESOMEP /01479302/ [Suspect]
     Active Substance: ESOMEPRAZOLE MAGNESIUM
     Dosage: 40 MG, 1X/DAY
     Route: 048
     Dates: end: 20150628
  4. CEFTRIAXON [Suspect]
     Active Substance: CEFTRIAXONE
     Dosage: UNK
     Dates: start: 20150526, end: 20150526
  5. MAGNESIOCARD [Concomitant]
     Active Substance: MAGNESIUM ASPARTATE HYDROCHLORIDE
     Dosage: 10 MMOL, 1X/DAY
     Dates: end: 20150628
  6. KONAKION [Concomitant]
     Active Substance: PHYTONADIONE
     Dosage: 1 MG, 2X/DAY
     Dates: end: 20150628
  7. CEFTRIAXON [Suspect]
     Active Substance: CEFTRIAXONE
     Dosage: UNK
     Dates: start: 20150528, end: 20150609
  8. BECOZYM FORTE [Concomitant]
     Dosage: 1 DF, 3X/DAY
     Dates: end: 20150628
  9. DUPHALAC [Concomitant]
     Active Substance: LACTULOSE
     Dosage: 20 ML, 4X/DAY
  10. PLUS KALIUM [Concomitant]
     Dosage: 600 MG, 3X/DAY
     Dates: end: 20150628
  11. TAZOBAC [Suspect]
     Active Substance: PIPERACILLIN SODIUM\TAZOBACTAM SODIUM
     Dosage: UNK
     Route: 048
     Dates: start: 20150526, end: 20150528
  12. TOREM /01036501/ [Suspect]
     Active Substance: TORSEMIDE
     Dosage: 10 MG, DAILY
     Route: 048
     Dates: end: 20150628
  13. XIFAXAN [Suspect]
     Active Substance: RIFAXIMIN
     Dosage: 400 MG, 3X/DAY
     Route: 048
     Dates: end: 20150628
  14. HALDOL [Suspect]
     Active Substance: HALOPERIDOL
     Dosage: 0.5 MG, 1X/DAY
     Route: 048
     Dates: end: 20150628
  15. BENERVA [Concomitant]
     Active Substance: THIAMINE
     Dosage: 300 MG, 1X/DAY
     Dates: end: 20150628
  16. SUPRADYN ENERGY [Concomitant]
     Dosage: 1 DF, 1X/DAY
     Dates: end: 20150628

REACTIONS (3)
  - Eosinophilia [Recovered/Resolved]
  - Eosinophilia [Recovered/Resolved]
  - Drug eruption [Recovering/Resolving]

NARRATIVE: CASE EVENT DATE: 20150622
